FAERS Safety Report 17009993 (Version 1)
Quarter: 2019Q4

REPORT INFORMATION
  Report Type: Spontaneous
  Country: US (occurrence: US)
  Receive Date: 20191108
  Receipt Date: 20191108
  Transmission Date: 20200122
  Serious: No
  Sender: FDA-Public Use
  Company Number: US-PFIZER INC-2019481985

PATIENT
  Age: 51 Year
  Sex: Female
  Weight: 57 kg

DRUGS (6)
  1. CHLOROPHYLL [Concomitant]
     Dosage: UNK
  2. VITAMIN B COMPLEX [Concomitant]
     Active Substance: CYANOCOBALAMIN\DEXPANTHENOL\NIACINAMIDE\PYRIDOXINE HYDROCHLORIDE\RIBOFLAVIN 5^-PHOSPHATE SODIUM\THIAMINE HYDROCHLORIDE\VITAMIN B COMPLEX
     Dosage: UNK
  3. CENTRUM MULTIGUMMIES [Concomitant]
     Active Substance: MINERALS\VITAMINS
     Dosage: UNK
  4. LYNPARZA [Concomitant]
     Active Substance: OLAPARIB
     Dosage: 1 DF, 2X/DAY
  5. VITAMIN C [Concomitant]
     Active Substance: ASCORBIC ACID
     Dosage: UNK
  6. IBRANCE [Suspect]
     Active Substance: PALBOCICLIB
     Indication: BREAST CANCER FEMALE
     Dosage: 75 MG, DAILY [DAILY WITH FOOD FOR 2]
     Route: 048

REACTIONS (3)
  - Throat irritation [Unknown]
  - Dyspepsia [Recovered/Resolved]
  - Gingival swelling [Unknown]
